FAERS Safety Report 5060297-4 (Version None)
Quarter: 2006Q3

REPORT INFORMATION
  Report Type: 
  Country: None (occurrence: None)
  Receive Date: 20060720
  Receipt Date: 20060621
  Transmission Date: 20061208
  Serious: Yes (Hospitalization, Disabling, Other)
  Sender: FDA-Public Use
  Company Number: 217743

PATIENT
  Age: 51 Year
  Sex: Male
  Weight: 112.8 kg

DRUGS (4)
  1. AVASTIN [Suspect]
     Indication: COLON CANCER
     Dosage: 590 MG, Q2W, INTRAVENOUS
     Route: 042
     Dates: start: 20050429, end: 20050722
  2. LEUCOVORIN CALCIUM [Concomitant]
  3. FLUOROURACIL [Concomitant]
  4. IRINOTECAN HCL [Concomitant]

REACTIONS (23)
  - ARTERIAL OCCLUSIVE DISEASE [None]
  - ARTERIAL THROMBOSIS LIMB [None]
  - BETA HAEMOLYTIC STREPTOCOCCAL INFECTION [None]
  - DEEP VEIN THROMBOSIS [None]
  - EXTREMITY NECROSIS [None]
  - GENERAL PHYSICAL HEALTH DETERIORATION [None]
  - HEPATIC FUNCTION ABNORMAL [None]
  - HEPATORENAL FAILURE [None]
  - HYPOTENSION [None]
  - IMPAIRED HEALING [None]
  - JOINT ABSCESS [None]
  - LESION OF SCIATIC NERVE [None]
  - METASTASES TO LUNG [None]
  - NECROSIS [None]
  - NEOPLASM RECURRENCE [None]
  - OSTEONECROSIS [None]
  - PERONEAL NERVE PALSY [None]
  - PNEUMONIA [None]
  - PULMONARY EMBOLISM [None]
  - PULMONARY INFARCTION [None]
  - PYOTHORAX [None]
  - RASH MACULO-PAPULAR [None]
  - STAPHYLOCOCCAL SEPSIS [None]
